FAERS Safety Report 25800927 (Version 6)
Quarter: 2025Q4

REPORT INFORMATION
  Report Type: Spontaneous
  Country: US (occurrence: US)
  Receive Date: 20250915
  Receipt Date: 20251224
  Transmission Date: 20260118
  Serious: Yes (Other)
  Sender: BRISTOL-MYERS SQUIBB COMPANY
  Company Number: US-BRISTOL-MYERS SQUIBB COMPANY-2025-126756

PATIENT
  Age: 73 Year
  Sex: Female
  Weight: 77.56 kg

DRUGS (3)
  1. POMALYST [Suspect]
     Active Substance: POMALIDOMIDE
     Indication: Plasma cell myeloma refractory
     Route: 048
  2. POMALYST [Suspect]
     Active Substance: POMALIDOMIDE
     Indication: Plasma cell myeloma
     Route: 048
     Dates: start: 20250918
  3. XPOVIO [Suspect]
     Active Substance: SELINEXOR
     Indication: Plasma cell myeloma
     Route: 048
     Dates: start: 20250911

REACTIONS (9)
  - Nausea [Recovering/Resolving]
  - Nasopharyngitis [Unknown]
  - Hypersensitivity [Unknown]
  - Fatigue [Unknown]
  - Hypersomnia [Unknown]
  - Diarrhoea [Recovering/Resolving]
  - Blood calcium decreased [Unknown]
  - Hypothyroidism [Unknown]
  - Gastrointestinal disorder [Unknown]

NARRATIVE: CASE EVENT DATE: 20250918
